FAERS Safety Report 9876357 (Version 3)
Quarter: 2014Q3

REPORT INFORMATION
  Report Type: Other
  Country: US (occurrence: US)
  Receive Date: 20140206
  Receipt Date: 20140922
  Transmission Date: 20150326
  Serious: Yes (Other)
  Sender: FDA-Public Use
  Company Number: US-ACORDA-ACO_37410_2013

PATIENT
  Age: 64 Year
  Sex: Female

DRUGS (3)
  1. AMPYRA [Suspect]
     Active Substance: DALFAMPRIDINE
     Indication: BALANCE DISORDER
     Dosage: 10 MG, BID
     Route: 065
     Dates: start: 201306
  2. AMPYRA [Suspect]
     Active Substance: DALFAMPRIDINE
     Indication: FALL
     Dosage: 10 MG, BID
     Route: 065
  3. AMPYRA [Suspect]
     Active Substance: DALFAMPRIDINE
     Indication: GAIT DISTURBANCE

REACTIONS (6)
  - Tendon rupture [Recovered/Resolved]
  - Muscular weakness [Not Recovered/Not Resolved]
  - Fall [Recovered/Resolved]
  - Therapy cessation [Recovered/Resolved]
  - Foot fracture [Recovered/Resolved]
  - Foot fracture [Unknown]

NARRATIVE: CASE EVENT DATE: 201207
